FAERS Safety Report 8826902 (Version 3)
Quarter: 2013Q4

REPORT INFORMATION
  Report Type: Spontaneous
  Country: FR (occurrence: DE)
  Receive Date: 20121005
  Receipt Date: 20131029
  Transmission Date: 20140711
  Serious: Yes (Other)
  Sender: FDA-Public Use
  Company Number: FR-ALEXION-A201201839

PATIENT
  Age: 43 Year
  Sex: Female

DRUGS (3)
  1. SOLIRIS 300MG [Suspect]
     Indication: HAEMOLYTIC URAEMIC SYNDROME
     Dosage: UNK, QW
     Route: 042
  2. SOLIRIS 300MG [Suspect]
     Dosage: UNK, EVERY OTHER MONTH
     Route: 042
  3. INFLUENZA VACCINE [Suspect]
     Indication: IMMUNISATION

REACTIONS (3)
  - Haemolytic uraemic syndrome [Recovered/Resolved]
  - Condition aggravated [Recovered/Resolved]
  - Off label use [Unknown]
